FAERS Safety Report 5315232-8 (Version None)
Quarter: 2007Q2

REPORT INFORMATION
  Report Type: 
  Country: None (occurrence: None)
  Receive Date: 20070502
  Receipt Date: 20070420
  Transmission Date: 20071010
  Serious: Yes (Other)
  Sender: FDA-Public Use
  Company Number: BO-PFIZER INC-2007029807

PATIENT
  Sex: Female

DRUGS (1)
  1. NEURONTIN [Suspect]
     Indication: NEUROPATHY
     Route: 048
     Dates: start: 20070322, end: 20070406

REACTIONS (4)
  - ABDOMINAL DISTENSION [None]
  - BURNING SENSATION [None]
  - JOINT SWELLING [None]
  - LIP SWELLING [None]
